FAERS Safety Report 10552178 (Version 2)
Quarter: 2015Q1

REPORT INFORMATION
  Report Type: Spontaneous
  Country: US (occurrence: US)
  Receive Date: 20141029
  Receipt Date: 20150204
  Transmission Date: 20150720
  Serious: Yes (Other)
  Sender: FDA-Public Use
  Company Number: US-GLAXOSMITHKLINE-US2014GSK013682

PATIENT
  Sex: Male

DRUGS (5)
  1. KEPPRA [Suspect]
     Active Substance: LEVETIRACETAM
     Indication: PRODUCT USED FOR UNKNOWN INDICATION
     Dosage: UNK, U
  2. KEPPRA [Suspect]
     Active Substance: LEVETIRACETAM
     Dosage: 2.5 ML, BID
  3. LAMICTAL [Suspect]
     Active Substance: LAMOTRIGINE
     Dosage: 125 MG, BID
  4. LAMICTAL [Suspect]
     Active Substance: LAMOTRIGINE
     Dosage: 150 MG, BID
     Dates: start: 201412
  5. LAMICTAL [Suspect]
     Active Substance: LAMOTRIGINE
     Dosage: UNK, U

REACTIONS (2)
  - Seizure [Unknown]
  - Aura [Unknown]

NARRATIVE: CASE EVENT DATE: 201412
